FAERS Safety Report 10197162 (Version 4)
Quarter: 2014Q3

REPORT INFORMATION
  Report Type: Spontaneous
  Country: US (occurrence: US)
  Receive Date: 20140527
  Receipt Date: 20140923
  Transmission Date: 20150326
  Serious: Yes (Death, Hospitalization)
  Sender: FDA-Public Use
  Company Number: US-GLAXOSMITHKLINE-A0887483A

PATIENT
  Age: 56 Year
  Sex: Female

DRUGS (2)
  1. VENTOLIN [Suspect]
     Active Substance: ALBUTEROL SULFATE
     Indication: PRODUCT USED FOR UNKNOWN INDICATION
     Dosage: 90MCG UNKNOWN
     Route: 065
     Dates: start: 20081216
  2. ADVAIR HFA [Suspect]
     Active Substance: FLUTICASONE PROPIONATE\SALMETEROL XINAFOATE
     Indication: ASTHMA
     Route: 065
     Dates: start: 20070829

REACTIONS (15)
  - Lung disorder [Unknown]
  - Respiratory gas exchange disorder [Unknown]
  - Myocardial infarction [Unknown]
  - Stent placement [Unknown]
  - Tracheostomy [Unknown]
  - Therapeutic embolisation [Unknown]
  - Hypersensitivity [Unknown]
  - Haematoma [Unknown]
  - Adverse event [Unknown]
  - Carotid angioplasty [Unknown]
  - Angioplasty [Unknown]
  - Death [Fatal]
  - Biopsy skin [Unknown]
  - Central venous catheterisation [Unknown]
  - Cardiac pacemaker insertion [Unknown]

NARRATIVE: CASE EVENT DATE: 20131005
